FAERS Safety Report 5107733-2 (Version None)
Quarter: 2006Q3

REPORT INFORMATION
  Report Type: 
  Country: None (occurrence: None)
  Receive Date: 20060919
  Receipt Date: 20060809
  Transmission Date: 20061208
  Serious: Yes (Other)
  Sender: FDA-Public Use
  Company Number: US-AVENTIS-200616600US

PATIENT
  Sex: Female

DRUGS (4)
  1. KETEK [Suspect]
     Indication: SINUSITIS
     Route: 048
     Dates: start: 20060125
  2. KETEK [Suspect]
     Indication: BRONCHITIS
     Route: 048
     Dates: start: 20060125
  3. SSRI [Concomitant]
     Route: 048
  4. DETROL [Concomitant]
     Indication: HYPERTONIC BLADDER
     Route: 048

REACTIONS (5)
  - ALANINE AMINOTRANSFERASE INCREASED [None]
  - ASPARTATE AMINOTRANSFERASE INCREASED [None]
  - BLOOD ALKALINE PHOSPHATASE INCREASED [None]
  - FATIGUE [None]
  - LIVER FUNCTION TEST ABNORMAL [None]
